FAERS Safety Report 4577832-2 (Version None)
Quarter: 2005Q1

REPORT INFORMATION
  Report Type: 
  Country: None (occurrence: None)
  Receive Date: 20050209
  Receipt Date: 20050126
  Transmission Date: 20050727
  Serious: Yes (Hospitalization)
  Sender: FDA-Public Use
  Company Number: WAES 0501USA04501

PATIENT
  Sex: Male

DRUGS (8)
  1. COZAAR [Suspect]
     Indication: HYPERTENSION
     Dosage: SEE IMAGE
     Route: 048
     Dates: start: 20020403, end: 20020508
  2. COZAAR [Suspect]
     Indication: HYPERTENSION
     Dosage: SEE IMAGE
     Route: 048
     Dates: start: 20030704, end: 20031024
  3. ALDACTONE [Concomitant]
  4. AMARYL [Concomitant]
  5. KREMEZIN [Concomitant]
  6. LASIX [Concomitant]
  7. MICARDIS [Concomitant]
  8. ZYLORIC [Concomitant]

REACTIONS (2)
  - BLOOD PRESSURE INCREASED [None]
  - CORONARY ARTERY DISEASE [None]
